FAERS Safety Report 19088972 (Version 3)
Quarter: 2021Q2

REPORT INFORMATION
  Report Type: Report from Study
  Country: None (occurrence: IL)
  Receive Date: 20210403
  Receipt Date: 20210414
  Transmission Date: 20210717
  Serious: Yes (Hospitalization)
  Sender: FDA-Public Use
  Company Number: IL-ABBVIE-21K-082-3737040-00

PATIENT
  Sex: Male

DRUGS (2)
  1. DUODOPA [Suspect]
     Active Substance: CARBIDOPA\LEVODOPA
     Dosage: MD 1.0ML, CD 3.4ML/HOUR, ED 2.0ML, NIGHT CONTINUOUS DOSAGE 1.7ML/H.
     Route: 050
  2. DUODOPA [Suspect]
     Active Substance: CARBIDOPA\LEVODOPA
     Indication: PARKINSON^S DISEASE
     Route: 050
     Dates: start: 20201123

REACTIONS (8)
  - Freezing phenomenon [Unknown]
  - Balance disorder [Unknown]
  - Akathisia [Unknown]
  - Dyskinesia [Unknown]
  - Asthenia [Unknown]
  - Muscle spasms [Unknown]
  - Chest pain [Unknown]
  - Sleep disorder [Unknown]
